FAERS Safety Report 4829294-5 (Version None)
Quarter: 2005Q4

REPORT INFORMATION
  Report Type: 
  Country: None (occurrence: None)
  Receive Date: 20051116
  Receipt Date: 20051112
  Transmission Date: 20060501
  Serious: Yes (Hospitalization)
  Sender: FDA-Public Use
  Company Number: JP-JPN-A20052736

PATIENT
  Age: 91 Year
  Sex: Female

DRUGS (6)
  1. MODACIN [Suspect]
     Indication: PNEUMONIA
     Dosage: 1G TWICE PER DAY
     Route: 042
     Dates: start: 20051108, end: 20051110
  2. HANP [Suspect]
     Route: 042
     Dates: start: 20051108, end: 20051110
  3. BOSMIN [Concomitant]
     Route: 065
  4. CATABON [Concomitant]
     Route: 042
  5. OMEPRAL [Concomitant]
     Route: 065
  6. LASIX [Concomitant]
     Route: 065

REACTIONS (4)
  - ALANINE AMINOTRANSFERASE INCREASED [None]
  - ASPARTATE AMINOTRANSFERASE INCREASED [None]
  - HEPATIC FUNCTION ABNORMAL [None]
  - RENAL IMPAIRMENT [None]
